FAERS Safety Report 5143069-1 (Version None)
Quarter: 2006Q4

REPORT INFORMATION
  Report Type: 
  Country: None (occurrence: None)
  Receive Date: 20061103
  Receipt Date: 20061026
  Transmission Date: 20070319
  Serious: Yes (Hospitalization, Other)
  Sender: FDA-Public Use
  Company Number: CO-JNJFOC-20061003228

PATIENT
  Sex: Female
  Weight: 53 kg

DRUGS (9)
  1. REMICADE [Suspect]
     Route: 042
  2. REMICADE [Suspect]
     Dosage: 16 INFUSIONS, DATES UNSPECIFIED
     Route: 042
  3. REMICADE [Suspect]
     Indication: RHEUMATOID ARTHRITIS
     Dosage: 18 INFUSIONS
     Route: 042
  4. DEFLAZACORT [Concomitant]
  5. MELOXICAM [Concomitant]
  6. CAPTOPRIL [Concomitant]
  7. METHOTREXATE [Concomitant]
  8. RISEDRONATE SODIUM [Concomitant]
  9. OMEPRAZOLE [Concomitant]

REACTIONS (1)
  - PULMONARY TUBERCULOSIS [None]
